FAERS Safety Report 24550910 (Version 3)
Quarter: 2024Q4

REPORT INFORMATION
  Report Type: Spontaneous
  Country: US (occurrence: US)
  Receive Date: 20241025
  Receipt Date: 20241030
  Transmission Date: 20250115
  Serious: No
  Sender: NOVARTIS
  Company Number: US-002147023-NVSC2024US208524

PATIENT
  Sex: Male

DRUGS (1)
  1. PLUVICTO [Suspect]
     Active Substance: LUTETIUM LU-177 VIPIVOTIDE TETRAXETAN
     Indication: Hormone-refractory prostate cancer
     Dosage: 7400 MBQ (200 MCI) (1 INJECTION EVERY 6 WEEKS, UP TO 6 INJECTIONS) (MECABEQUERAL) (OTHER)
     Route: 042
     Dates: start: 20241011, end: 20241011

REACTIONS (2)
  - Fall [Unknown]
  - Head injury [Unknown]

NARRATIVE: CASE EVENT DATE: 20241011
